FAERS Safety Report 12060035 (Version 1)
Quarter: 2016Q1

REPORT INFORMATION
  Report Type: Spontaneous
  Country: CN (occurrence: CN)
  Receive Date: 20160210
  Receipt Date: 20160210
  Transmission Date: 20160526
  Serious: Yes (Death, Hospitalization, Disabling)
  Sender: FDA-Public Use
  Company Number: CN-SA-2016SA023655

PATIENT
  Age: 25 Year
  Sex: Female

DRUGS (4)
  1. CYCLOPHOSPHAMIDE. [Suspect]
     Active Substance: CYCLOPHOSPHAMIDE
     Indication: BONE MARROW CONDITIONING REGIMEN
     Route: 065
  2. FLUDARABINE PHOSPHATE. [Suspect]
     Active Substance: FLUDARABINE PHOSPHATE
     Indication: BONE MARROW CONDITIONING REGIMEN
     Route: 065
  3. BUSULFAN [Suspect]
     Active Substance: BUSULFAN
     Indication: BONE MARROW CONDITIONING REGIMEN
     Route: 065
  4. CYCLOPHOSPHAMIDE. [Suspect]
     Active Substance: CYCLOPHOSPHAMIDE
     Indication: BONE MARROW CONDITIONING REGIMEN
     Route: 065

REACTIONS (9)
  - Cellulitis orbital [Unknown]
  - Product use issue [Unknown]
  - Stenotrophomonas infection [Recovering/Resolving]
  - Blindness unilateral [Unknown]
  - Fungal infection [Recovering/Resolving]
  - Escherichia infection [Recovering/Resolving]
  - Shock [Fatal]
  - Multiple organ dysfunction syndrome [Fatal]
  - Sinusitis [Recovering/Resolving]
